FAERS Safety Report 7374955-X (Version None)
Quarter: 2011Q1

REPORT INFORMATION
  Report Type: 
  Country: None (occurrence: None)
  Receive Date: 20110325
  Receipt Date: 20110313
  Transmission Date: 20110831
  Serious: Yes (Hospitalization)
  Sender: FDA-Public Use
  Company Number: PHHY2011CA21477

PATIENT
  Sex: Female

DRUGS (3)
  1. VITAMIN D [Concomitant]
     Dosage: 400 IU, BID
     Dates: start: 19950101
  2. CALCIUM [Concomitant]
     Dosage: 500 MG, BID
  3. ACLASTA/ZOLEDRONATE [Suspect]
     Indication: OSTEOPOROSIS
     Dosage: 5 MG/100ML YEARLY
     Route: 042
     Dates: start: 20100929

REACTIONS (4)
  - FALL [None]
  - CLAVICLE FRACTURE [None]
  - UPPER LIMB FRACTURE [None]
  - HIP FRACTURE [None]
